FAERS Safety Report 10045642 (Version 1)
Quarter: 2014Q1

REPORT INFORMATION
  Report Type: Spontaneous
  Country: US (occurrence: US)
  Receive Date: 20140328
  Receipt Date: 20140328
  Transmission Date: 20141002
  Serious: Yes (Hospitalization)
  Sender: FDA-Public Use
  Company Number: US-BRISTOL-MYERS SQUIBB COMPANY-20556866

PATIENT
  Sex: Male

DRUGS (2)
  1. YERVOY [Suspect]
     Dates: start: 20140211, end: 2014
  2. COUMADIN [Suspect]

REACTIONS (2)
  - Haematochezia [Unknown]
  - International normalised ratio increased [Unknown]
